FAERS Safety Report 10977221 (Version 2)
Quarter: 2015Q2

REPORT INFORMATION
  Report Type: Spontaneous
  Country: IT (occurrence: None)
  Receive Date: 20150330
  Receipt Date: 20150403
  Transmission Date: 20150821
  Serious: Yes (Other)
  Sender: FDA-Public Use
  Company Number: KAD201503-000579

PATIENT
  Age: 44 Year
  Sex: Male

DRUGS (6)
  1. RIBAVIRIN (RIBAVIRIN) [Suspect]
     Active Substance: RIBAVIRIN
     Indication: HEPATITIS C ANTIBODY POSITIVE
     Dosage: TABLET
     Route: 048
     Dates: start: 20150130, end: 20150315
  2. CITALOPRAM [Concomitant]
     Active Substance: CITALOPRAM HYDROBROMIDE
  3. DEPAKIN 500 MG (VALPROATE SODIUM) (VALPROATE SODIUM) [Concomitant]
  4. TRITTICO 100 MG (TRAZODONE HYDROCHLORIDE) (TRAZODONE HYDROCHLORIDE) [Concomitant]
  5. PEGASYS [Suspect]
     Active Substance: PEGINTERFERON ALFA-2A
     Indication: HEPATITIS C ANTIBODY POSITIVE
     Dosage: SOLUTION FOR INJECTION
     Route: 030
     Dates: start: 20150130, end: 20150315
  6. METHADONE HYDROCHLORIDE (METHADONE HYDROCHLORIDE) (METHADONE HYDROCHLORIDE) [Concomitant]

REACTIONS (3)
  - Pruritus generalised [None]
  - Rash maculo-papular [None]
  - Skin lesion [None]

NARRATIVE: CASE EVENT DATE: 20150313
